FAERS Safety Report 18599300 (Version 2)
Quarter: 2021Q1

REPORT INFORMATION
  Report Type: Report from Study
  Country: BR (occurrence: BR)
  Receive Date: 20201210
  Receipt Date: 20210327
  Transmission Date: 20210419
  Serious: Yes (Hospitalization, Other)
  Sender: FDA-Public Use
  Company Number: NVSC2020BR070641

PATIENT
  Age: 9 Year
  Sex: Female

DRUGS (6)
  1. AZITHROMYCIN ANHYDROUS. [Suspect]
     Active Substance: AZITHROMYCIN ANHYDROUS
     Indication: PRODUCT USED FOR UNKNOWN INDICATION
     Dosage: UNK, QD (STOPPED AFTER 2 YEARS)
     Route: 065
  2. AEROLIN [Concomitant]
     Active Substance: ALBUTEROL
     Indication: PRODUCT USED FOR UNKNOWN INDICATION
     Dosage: UNK
     Route: 065
  3. XOLAIR [Suspect]
     Active Substance: OMALIZUMAB
     Indication: ASTHMA
     Dosage: UNK
     Route: 065
     Dates: start: 201910
  4. SPIRIVA [Concomitant]
     Active Substance: TIOTROPIUM BROMIDE MONOHYDRATE
     Indication: PRODUCT USED FOR UNKNOWN INDICATION
     Dosage: UNK
     Route: 065
  5. XOLAIR [Suspect]
     Active Substance: OMALIZUMAB
     Dosage: UNK
     Route: 065
     Dates: start: 20191112, end: 20200211
  6. MIFLONIDE [Suspect]
     Active Substance: BUDESONIDE
     Indication: PRODUCT USED FOR UNKNOWN INDICATION
     Dosage: 400 MG
     Route: 065

REACTIONS (17)
  - Pneumothorax [Recovering/Resolving]
  - Fatigue [Recovering/Resolving]
  - Atelectasis [Unknown]
  - Dysmorphism [Recovered/Resolved]
  - Eye colour change [Recovered/Resolved]
  - Oxygen saturation decreased [Recovered/Resolved]
  - Infection [Recovering/Resolving]
  - Blood immunoglobulin E increased [Recovered/Resolved]
  - Productive cough [Recovering/Resolving]
  - Eosinophil count increased [Unknown]
  - Blood immunoglobulin E increased [Recovered/Resolved]
  - Lip discolouration [Recovered/Resolved]
  - Blood immunoglobulin E increased [Not Recovered/Not Resolved]
  - Asthmatic crisis [Unknown]
  - Rhinorrhoea [Recovering/Resolving]
  - Drug ineffective [Unknown]
  - Dark circles under eyes [Recovered/Resolved]

NARRATIVE: CASE EVENT DATE: 201910
